FAERS Safety Report 8158769-9 (Version None)
Quarter: 2012Q1

REPORT INFORMATION
  Report Type: 
  Country: None (occurrence: None)
  Receive Date: 20120223
  Receipt Date: 20120217
  Transmission Date: 20120608
  Serious: Yes (Other)
  Sender: FDA-Public Use
  Company Number: BR-PFIZER INC-2012043533

PATIENT
  Age: 38 Year
  Sex: Female
  Weight: 57 kg

DRUGS (4)
  1. DOSTINEX [Concomitant]
     Indication: BLOOD PROLACTIN INCREASED
  2. ACETAMINOPHEN [Concomitant]
     Indication: PAIN
  3. XALATAN [Suspect]
     Indication: ANGLE CLOSURE GLAUCOMA
     Dosage: UNK
     Route: 047
     Dates: start: 20100101
  4. DIPIRONA [Concomitant]
     Indication: PAIN

REACTIONS (1)
  - EYE DISORDER [None]
